FAERS Safety Report 10384767 (Version 1)
Quarter: 2014Q3

REPORT INFORMATION
  Report Type: Spontaneous
  Country: US (occurrence: None)
  Receive Date: 20140812
  Receipt Date: 20140812
  Transmission Date: 20150326
  Serious: Yes (Death, Hospitalization)
  Sender: FDA-Public Use
  Company Number: INS201407-000151

PATIENT
  Sex: Male
  Weight: 75.29 kg

DRUGS (2)
  1. NEXAVAR [Concomitant]
     Active Substance: SORAFENIB
     Dates: start: 20140601
  2. SUBSYS [Suspect]
     Active Substance: FENTANYL
     Indication: BREAKTHROUGH PAIN
     Route: 060
     Dates: start: 20140530, end: 20140603

REACTIONS (5)
  - Abnormal behaviour [None]
  - Disorientation [None]
  - Drug administration error [None]
  - Drug interaction [None]
  - Hepatic failure [None]
